FAERS Safety Report 4353458-0 (Version None)
Quarter: 2004Q2

REPORT INFORMATION
  Report Type: 
  Country: None (occurrence: None)
  Receive Date: 20040430
  Receipt Date: 20040421
  Transmission Date: 20050107
  Serious: Yes (Death)
  Sender: FDA-Public Use
  Company Number: US-JNJFOC-20040204213

PATIENT
  Age: 62 Year
  Sex: Female

DRUGS (9)
  1. DURAGESIC [Suspect]
     Indication: CANCER PAIN
     Dosage: 50 UG/HR, 1 IN 72 HOUR, TRANSDERMAL    SEE IMAGE
     Route: 062
     Dates: start: 20040201, end: 20040214
  2. DURAGESIC [Suspect]
     Indication: CANCER PAIN
     Dosage: 50 UG/HR, 1 IN 72 HOUR, TRANSDERMAL    SEE IMAGE
     Route: 062
     Dates: start: 20030101
  3. DURAGESIC [Suspect]
     Indication: CANCER PAIN
     Dosage: 50 UG/HR, 1 IN 72 HOUR, TRANSDERMAL    SEE IMAGE
     Route: 062
     Dates: start: 20040214
  4. HERCEPTIN [Concomitant]
  5. REGLAN [Concomitant]
  6. OXYCODONE [Concomitant]
  7. ALPRAZOLAM [Concomitant]
  8. VITAMIN C (ASCORBIC ACID) [Concomitant]
  9. ZOMETA [Concomitant]

REACTIONS (7)
  - DRUG EFFECT DECREASED [None]
  - MALIGNANT NEOPLASM PROGRESSION [None]
  - METASTATIC NEOPLASM [None]
  - NAUSEA [None]
  - PAIN EXACERBATED [None]
  - PHARMACEUTICAL PRODUCT COMPLAINT [None]
  - VOMITING [None]
